FAERS Safety Report 6765044-3 (Version None)
Quarter: 2010Q2

REPORT INFORMATION
  Report Type: 
  Country: None (occurrence: None)
  Receive Date: 20100609
  Receipt Date: 20100429
  Transmission Date: 20101027
  Serious: No
  Sender: FDA-Public Use
  Company Number: 2010010259

PATIENT
  Age: 7 Year
  Sex: Male
  Weight: 23.1334 kg

DRUGS (2)
  1. CHILDREN'S ZYRTEC ALLERGY [Suspect]
     Indication: SEASONAL ALLERGY
     Dosage: HALF TO ONE CHEWABLE (UNK, EVERY 24 HOURS) , OAL
     Route: 048
  2. SINGULAIR [Concomitant]

REACTIONS (1)
  - AGITATION [None]
